FAERS Safety Report 5863927-X (Version None)
Quarter: 2008Q3

REPORT INFORMATION
  Report Type: 
  Country: None (occurrence: None)
  Receive Date: 20080829
  Receipt Date: 20080819
  Transmission Date: 20090109
  Serious: Yes (Other)
  Sender: FDA-Public Use
  Company Number: US-JNJFOC-20080804628

PATIENT
  Sex: Female
  Weight: 81.65 kg

DRUGS (10)
  1. DURAGESIC-100 [Suspect]
     Route: 062
  2. DURAGESIC-100 [Suspect]
     Indication: NEURALGIA
     Route: 062
  3. FENTANYL TRANSDERMAL SYSTEM [Suspect]
     Indication: PAIN
     Route: 062
  4. OVCON-35 [Concomitant]
     Indication: CONTRACEPTION
     Route: 048
  5. THYROID MEDICATION [Concomitant]
     Indication: THYROID DISORDER
     Route: 048
  6. IMDUR [Concomitant]
     Indication: CARDIAC DISORDER
     Route: 048
  7. METOPROLOL TARTRATE [Concomitant]
     Indication: CARDIAC DISORDER
     Route: 048
  8. AMLODIPINE [Concomitant]
     Indication: CARDIAC DISORDER
     Route: 048
  9. ZOCOR [Concomitant]
     Indication: CARDIAC DISORDER
     Route: 048
  10. METFORMIN HCL [Concomitant]
     Indication: DIABETES MELLITUS
     Route: 048

REACTIONS (3)
  - CARDIAC VALVE DISEASE [None]
  - DRUG INEFFECTIVE [None]
  - OEDEMA PERIPHERAL [None]
